FAERS Safety Report 9975271 (Version 1)
Quarter: 2014Q1

REPORT INFORMATION
  Report Type: Report from Study
  Country: US (occurrence: US)
  Receive Date: 20140306
  Receipt Date: 20140306
  Transmission Date: 20141002
  Serious: No
  Sender: FDA-Public Use
  Company Number: US-ABBVIE-13P-163-1161590-00

PATIENT
  Age: 56 Year
  Sex: Female
  Weight: 69.01 kg

DRUGS (15)
  1. HUMIRA [Suspect]
     Indication: RHEUMATOID ARTHRITIS
     Route: 058
     Dates: start: 201112, end: 201203
  2. HUMIRA [Suspect]
     Route: 058
     Dates: start: 201210, end: 201302
  3. HUMIRA [Suspect]
     Route: 058
     Dates: start: 201304
  4. ARAVA [Suspect]
     Indication: RHEUMATOID ARTHRITIS
     Dates: start: 201205, end: 201302
  5. METHOTREXATE [Suspect]
     Indication: RHEUMATOID ARTHRITIS
     Dates: start: 201001, end: 201205
  6. FLUOCINONIDE [Concomitant]
     Indication: HYPERSENSITIVITY
     Route: 045
  7. VITAMINS NOS [Concomitant]
     Indication: VITAMIN SUPPLEMENTATION
  8. B COMPLEX [Concomitant]
     Indication: PRODUCT USED FOR UNKNOWN INDICATION
  9. OMEGA 3-6-9 [Concomitant]
     Indication: RHEUMATOID ARTHRITIS
  10. MAGNESIUM [Concomitant]
     Indication: PRODUCT USED FOR UNKNOWN INDICATION
  11. CALCIUM CITRATE [Concomitant]
     Indication: PRODUCT USED FOR UNKNOWN INDICATION
  12. PREDNISONE [Concomitant]
     Indication: RHEUMATOID ARTHRITIS
  13. ZINC [Concomitant]
     Indication: PRODUCT USED FOR UNKNOWN INDICATION
  14. VITAMIN D3 [Concomitant]
     Indication: RHEUMATOID ARTHRITIS
  15. ASPIRIN [Concomitant]
     Indication: PRODUCT USED FOR UNKNOWN INDICATION

REACTIONS (7)
  - Injection site bruising [Not Recovered/Not Resolved]
  - Drug effect decreased [Not Recovered/Not Resolved]
  - Herpes zoster [Recovered/Resolved]
  - Sinusitis [Recovered/Resolved]
  - Arthralgia [Not Recovered/Not Resolved]
  - Hepatic enzyme increased [Recovered/Resolved]
  - Blood cholesterol increased [Recovered/Resolved]
